FAERS Safety Report 10172063 (Version 1)
Quarter: 2014Q2

REPORT INFORMATION
  Report Type: Spontaneous
  Country: AR (occurrence: AR)
  Receive Date: 20140515
  Receipt Date: 20140515
  Transmission Date: 20141212
  Serious: Yes (Other)
  Sender: FDA-Public Use
  Company Number: PHHY2014AR058411

PATIENT
  Sex: Female

DRUGS (1)
  1. ACLASTA [Suspect]
     Indication: OSTEOPOROSIS
     Dosage: 5 MG, ONCE A YEAR
     Route: 042
     Dates: start: 2009, end: 2009

REACTIONS (2)
  - Spinal fracture [Not Recovered/Not Resolved]
  - Abasia [Not Recovered/Not Resolved]
